FAERS Safety Report 10167290 (Version 1)
Quarter: 2014Q2

REPORT INFORMATION
  Report Type: Spontaneous
  Country: US (occurrence: US)
  Receive Date: 20140512
  Receipt Date: 20140512
  Transmission Date: 20141212
  Serious: No
  Sender: FDA-Public Use
  Company Number: US-PFIZER INC-2014128352

PATIENT
  Sex: Female

DRUGS (1)
  1. SERTRALINE HCL [Suspect]
     Dosage: CUT THE 25MG IN HALF
     Dates: start: 20140331

REACTIONS (3)
  - Vertigo [Unknown]
  - Insomnia [Recovered/Resolved]
  - Libido decreased [Unknown]
